FAERS Safety Report 8161600-9 (Version None)
Quarter: 2012Q1

REPORT INFORMATION
  Report Type: 
  Country: None (occurrence: None)
  Receive Date: 20120224
  Receipt Date: 20120220
  Transmission Date: 20120608
  Serious: Yes (Life-Threatening, Hospitalization)
  Sender: FDA-Public Use
  Company Number: US-BAYER-2011-085215

PATIENT
  Age: 21 Year
  Sex: Female
  Weight: 113.38 kg

DRUGS (3)
  1. YAZ [Suspect]
     Indication: CONTRACEPTION
     Dosage: UNK
     Route: 048
     Dates: start: 20061001, end: 20070101
  2. YASMIN [Suspect]
     Indication: CONTRACEPTION
     Dosage: UNK
     Route: 048
     Dates: start: 20030101, end: 20030501
  3. YASMIN [Suspect]
     Dosage: UNK
     Route: 048
     Dates: start: 20030801, end: 20050801

REACTIONS (10)
  - FEAR [None]
  - PNEUMOTHORAX [None]
  - ATELECTASIS [None]
  - ANXIETY [None]
  - ANHEDONIA [None]
  - EMOTIONAL DISTRESS [None]
  - PAIN [None]
  - CHOLECYSTITIS [None]
  - GALLBLADDER DISORDER [None]
  - DYSPNOEA [None]
